FAERS Safety Report 4949374-3 (Version None)
Quarter: 2006Q1

REPORT INFORMATION
  Report Type: 
  Country: None (occurrence: None)
  Receive Date: 20060315
  Receipt Date: 20060222
  Transmission Date: 20060701
  Serious: Yes (Hospitalization)
  Sender: FDA-Public Use
  Company Number: US_0510122986

PATIENT
  Age: 39 Year
  Sex: Female
  Weight: 90.2 kg

DRUGS (11)
  1. ZYPREXA [Suspect]
     Indication: SLEEP DISORDER
     Dosage: SEE IMAGE
     Route: 048
     Dates: start: 20000312, end: 20000614
  2. ZYPREXA [Suspect]
     Indication: SLEEP DISORDER
     Dosage: SEE IMAGE
     Route: 048
     Dates: start: 20000614
  3. ZYPREXA [Suspect]
     Indication: SLEEP DISORDER
     Dosage: SEE IMAGE
     Route: 048
     Dates: start: 20000725
  4. ZYPREXA [Suspect]
     Indication: SLEEP DISORDER
     Dosage: SEE IMAGE
     Route: 048
     Dates: start: 20010430
  5. PROZAC [Concomitant]
  6. NEURONTIN [Concomitant]
  7. CELEXA [Concomitant]
  8. XANAX /USA/ (ALPRAZOLAM) [Concomitant]
  9. VASOTEC [Concomitant]
  10. PAXIL [Concomitant]
  11. DEPAKOTE [Concomitant]

REACTIONS (6)
  - BIPOLAR DISORDER [None]
  - DIABETES MELLITUS [None]
  - DIABETIC NEUROPATHY [None]
  - MANIA [None]
  - PRESCRIBED OVERDOSE [None]
  - WEIGHT FLUCTUATION [None]
